FAERS Safety Report 17078655 (Version 4)
Quarter: 2020Q1

REPORT INFORMATION
  Report Type: Spontaneous
  Country: JP (occurrence: JP)
  Receive Date: 20191127
  Receipt Date: 20200220
  Transmission Date: 20200409
  Serious: Yes (Hospitalization)
  Sender: FDA-Public Use
  Company Number: JP-ADVANZ PHARMA-201911001961

PATIENT

DRUGS (4)
  1. E KEPPRA [Concomitant]
     Active Substance: LEVETIRACETAM
     Indication: EPILEPSY
     Dosage: UNK DOSE AND FREQUENCY UNKNOWN (DRUG START PERIOD AND UNIT: 259 DAYS)
     Route: 065
     Dates: start: 20190228
  2. ZONISAMIDE. [Suspect]
     Active Substance: ZONISAMIDE
     Indication: JUVENILE MYOCLONIC EPILEPSY
     Dosage: 100 MG, QD TABLETS DRUG START PERIOD UNIT 20 DAYS
     Route: 048
     Dates: start: 20191025, end: 20191031
  3. ZONISAMIDE. [Suspect]
     Active Substance: ZONISAMIDE
     Dosage: 100 MG, BID TABLET (DRUG INTERVALDOSAGEUNITNUMB: 12 HOUS) (DRUG START PERIOD AND UNIT: 20 DAYS)
     Dates: start: 20191101, end: 20191115
  4. VIMPAT [Concomitant]
     Active Substance: LACOSAMIDE
     Indication: PRODUCT USED FOR UNKNOWN INDICATION
     Dosage: UNK (DRUG START PERIOD AND UNIT: 144 DAYS)
     Route: 065
     Dates: start: 20190723, end: 20190913

REACTIONS (4)
  - Photophobia [Recovering/Resolving]
  - Pyrexia [Recovered/Resolved]
  - Granulocyte count decreased [Recovered/Resolved]
  - Decreased appetite [Recovering/Resolving]

NARRATIVE: CASE EVENT DATE: 20191105
